FAERS Safety Report 7034975-1 (Version None)
Quarter: 2010Q4

REPORT INFORMATION
  Report Type: 
  Country: None (occurrence: None)
  Receive Date: 20101008
  Receipt Date: 20101004
  Transmission Date: 20110411
  Serious: Yes (Other)
  Sender: FDA-Public Use
  Company Number: KE-US-EMD SERONO, INC.-7020178

PATIENT
  Age: 24 Year
  Sex: Female
  Weight: 75 kg

DRUGS (1)
  1. GONAL-F [Suspect]
     Indication: AZOOSPERMIA
     Route: 065
     Dates: start: 20090101, end: 20090101

REACTIONS (1)
  - ABORTION SPONTANEOUS [None]
